FAERS Safety Report 17093041 (Version 6)
Quarter: 2020Q1

REPORT INFORMATION
  Report Type: Spontaneous
  Country: CA (occurrence: CA)
  Receive Date: 20191129
  Receipt Date: 20200107
  Transmission Date: 20200409
  Serious: Yes (Hospitalization, Other)
  Sender: FDA-Public Use
  Company Number: CA-PFIZER INC-2019518071

PATIENT
  Age: 57 Year
  Sex: Female
  Weight: 64 kg

DRUGS (8)
  1. KEVZARA [Suspect]
     Active Substance: SARILUMAB
     Dosage: 1 DF, CYCLIC (ONE INJECTION EVERY 2 WEEKS)
     Dates: start: 2015, end: 201906
  2. ARTHROTEC [Concomitant]
     Active Substance: DICLOFENAC SODIUM\MISOPROSTOL
     Dosage: 75 MG, 2X/DAY
     Route: 048
     Dates: start: 201910
  3. METHOTREXATE SODIUM. [Suspect]
     Active Substance: METHOTREXATE SODIUM
     Dosage: UNK
     Dates: start: 1979
  4. HUMIRA [Concomitant]
     Active Substance: ADALIMUMAB
     Dosage: UNK
     Dates: end: 2015
  5. HUMIRA [Concomitant]
     Active Substance: ADALIMUMAB
     Dosage: UNK
     Dates: start: 1999
  6. HUMIRA [Concomitant]
     Active Substance: ADALIMUMAB
     Dosage: UNK
  7. METHOTREXATE. [Concomitant]
     Active Substance: METHOTREXATE
     Dosage: UNK
  8. METHOTREXATE. [Concomitant]
     Active Substance: METHOTREXATE
     Dosage: 0.6 ML, WEEKLY (0.6 CC)
     Dates: start: 20191115

REACTIONS (10)
  - Spinal stenosis [Unknown]
  - Hypersomnia [Not Recovered/Not Resolved]
  - Diverticulitis [Unknown]
  - Fatigue [Not Recovered/Not Resolved]
  - Oropharyngeal pain [Unknown]
  - White blood cell count increased [Unknown]
  - Pharyngitis streptococcal [Unknown]
  - Malaise [Not Recovered/Not Resolved]
  - Infection [Unknown]
  - Fungal infection [Unknown]

NARRATIVE: CASE EVENT DATE: 2002
